FAERS Safety Report 9624497 (Version 1)
Quarter: 2013Q4

REPORT INFORMATION
  Report Type: Spontaneous
  Country: AT (occurrence: AT)
  Receive Date: 20131015
  Receipt Date: 20131015
  Transmission Date: 20140711
  Serious: Yes (Other)
  Sender: FDA-Public Use
  Company Number: AT-BAXTER-2013BAX039922

PATIENT
  Age: 50 Year
  Sex: Female

DRUGS (2)
  1. TISSEEL L?SUNGEN F?R EINEN GEWEBEKLEBER [Suspect]
     Indication: INTRACRANIAL ANEURYSM
  2. TISSEEL L?SUNGEN F?R EINEN GEWEBEKLEBER [Suspect]
     Indication: OFF LABEL USE

REACTIONS (1)
  - Hydrocephalus [Recovered/Resolved]
